FAERS Safety Report 5234575-X (Version None)
Quarter: 2007Q1

REPORT INFORMATION
  Report Type: 
  Country: None (occurrence: None)
  Receive Date: 20070209
  Receipt Date: 20070129
  Transmission Date: 20070707
  Serious: Yes (Other)
  Sender: FDA-Public Use
  Company Number: PHBS2007IT02057

PATIENT
  Age: 71 Year
  Sex: Female

DRUGS (1)
  1. ZOMETA [Suspect]
     Indication: METASTASES TO BONE
     Dosage: 4 MG, MONTHLY
     Route: 042

REACTIONS (5)
  - BACTERIAL INFECTION [None]
  - BONE DISORDER [None]
  - OSTEONECROSIS [None]
  - SCINTIGRAPHY [None]
  - WOUND DEBRIDEMENT [None]
